FAERS Safety Report 9462426 (Version 1)
Quarter: 2013Q3

REPORT INFORMATION
  Report Type: Spontaneous
  Country: SI (occurrence: SI)
  Receive Date: 20130816
  Receipt Date: 20130816
  Transmission Date: 20140515
  Serious: Yes (Death, Other)
  Sender: FDA-Public Use
  Company Number: PHHY2013SI087388

PATIENT
  Age: 35 Year
  Sex: Female

DRUGS (12)
  1. IRINOTECAN [Suspect]
     Indication: RECTAL CANCER
     Dosage: 250 MG/M2, UNK
     Dates: start: 200801
  2. IRINOTECAN [Suspect]
     Indication: METASTASES TO LIVER
  3. CAPECITABINE [Suspect]
     Indication: RECTAL CANCER
     Dosage: 1000 MG/M2, UNK
     Dates: start: 200801
  4. CAPECITABINE [Suspect]
     Indication: METASTASES TO LIVER
     Dosage: 1000 MG/M2, UNK
     Dates: start: 200901
  5. OXALIPLATIN [Suspect]
     Indication: RECTAL CANCER
     Dosage: 130 MG/M2, UNK
     Dates: start: 200901
  6. OXALIPLATIN [Suspect]
     Indication: METASTASES TO LIVER
     Dosage: 300 MG, ONCE/SINGLE
  7. CETUXIMAB [Suspect]
     Indication: RECTAL CANCER
     Dosage: 400 MG/M2, UNK
     Dates: start: 200801
  8. CETUXIMAB [Suspect]
     Indication: METASTASES TO LIVER
     Dosage: 250 MG/M2, UNK
     Dates: start: 200901
  9. CETUXIMAB [Suspect]
     Dosage: 500 MG/M2, UNK
  10. BEVACIZUMAB [Suspect]
     Indication: RECTAL CANCER
     Dosage: 7.5 MG/KG, UNK
  11. BEVACIZUMAB [Suspect]
     Indication: METASTASES TO LIVER
  12. FLUOROURACILO FERRER FARMA [Concomitant]
     Dosage: 750 MG, ONCE/SINGLE
     Route: 042

REACTIONS (6)
  - Rectal cancer recurrent [Fatal]
  - Metastases to liver [Fatal]
  - Metastases to bone [Unknown]
  - Palmar-plantar erythrodysaesthesia syndrome [Unknown]
  - Paraesthesia [Recovered/Resolved]
  - Acne [Unknown]
